FAERS Safety Report 9329347 (Version 4)
Quarter: 2013Q4

REPORT INFORMATION
  Report Type: Spontaneous
  Country: US (occurrence: US)
  Receive Date: 20130604
  Receipt Date: 20131121
  Transmission Date: 20140711
  Serious: Yes (Hospitalization, Other)
  Sender: FDA-Public Use
  Company Number: US-009507513-1306USA000864

PATIENT
  Age: 32 Year
  Sex: Female

DRUGS (3)
  1. PEGINTRON [Suspect]
     Indication: HEPATITIS C
     Dosage: REDIPEN
     Dates: start: 20130518
  2. REBETOL [Suspect]
     Indication: HEPATITIS C
     Dosage: UNK
     Route: 048
     Dates: start: 20130518
  3. VICTRELIS [Suspect]
     Indication: HEPATITIS C
     Dosage: UNK
     Route: 048
     Dates: start: 20130614

REACTIONS (13)
  - Adverse drug reaction [Unknown]
  - Loss of consciousness [Unknown]
  - Drug dependence [Unknown]
  - Drug rehabilitation [Not Recovered/Not Resolved]
  - Tongue ulceration [Unknown]
  - Tongue disorder [Unknown]
  - Stomatitis [Unknown]
  - Dry mouth [Unknown]
  - Skin fissures [Unknown]
  - Yawning [Unknown]
  - Discomfort [Unknown]
  - Product quality issue [Unknown]
  - Drug dose omission [Unknown]
